FAERS Safety Report 23946291 (Version 1)
Quarter: 2024Q2

REPORT INFORMATION
  Report Type: Spontaneous
  Country: US (occurrence: US)
  Receive Date: 20240606
  Receipt Date: 20240606
  Transmission Date: 20240716
  Serious: Yes (Hospitalization)
  Sender: FDA-Public Use
  Company Number: US-DRL-USA-LIT/USA/24/0008057

PATIENT
  Age: 68 Year
  Sex: Female

DRUGS (2)
  1. OMEPRAZOLE [Suspect]
     Active Substance: DONEPEZIL HYDROCHLORIDE\OMEPRAZOLE\OMEPRAZOLE MAGNESIUM
     Indication: Gastrooesophageal reflux disease
     Dosage: 40MG TWICE DAILY
  2. FERROUS SULFATE [Suspect]
     Active Substance: FERROUS SULFATE
     Indication: Iron deficiency anaemia
     Route: 048

REACTIONS (2)
  - Gastritis [Unknown]
  - Drug interaction [Unknown]
